FAERS Safety Report 8123806-4 (Version None)
Quarter: 2012Q1

REPORT INFORMATION
  Report Type: 
  Country: None (occurrence: None)
  Receive Date: 20120208
  Receipt Date: 20120130
  Transmission Date: 20120608
  Serious: Yes (Other)
  Sender: FDA-Public Use
  Company Number: US-ASTRAZENECA-2012SE06487

PATIENT
  Age: 57 Year
  Sex: Female

DRUGS (24)
  1. BUSPAR [Concomitant]
     Route: 048
  2. ATIVAN [Concomitant]
     Dosage: 1 TABLET EVERY 6 HOURS IF NEEDED
     Route: 048
  3. FISH OIL [Concomitant]
     Route: 048
  4. POTASSIUM CHLORIDE [Concomitant]
     Route: 048
  5. NORVASC [Concomitant]
     Route: 048
  6. ASPIRIN [Concomitant]
     Route: 048
  7. VITAMIN D [Concomitant]
     Route: 048
  8. NIASPAN [Concomitant]
     Route: 048
  9. ZETIA [Concomitant]
     Route: 048
  10. APRESOLINE [Concomitant]
     Route: 048
  11. NITROSTAT [Concomitant]
     Indication: CHEST PAIN
     Dosage: PLACE 1 TABLET UNDER THE TONGUE EVERY 5 MINUTES IF NEEDED. FOR CHEST PAIN X3 DOSES.
     Route: 060
  12. PROZAC [Concomitant]
     Route: 048
  13. NIACIN [Concomitant]
     Route: 048
  14. TOPROL-XL [Suspect]
     Route: 048
  15. CRESTOR [Suspect]
     Route: 048
  16. HYGROTON [Concomitant]
     Route: 048
  17. ACETAMINOPHEN [Concomitant]
     Dosage: 300-30 MG, TAKE 1 TABLET EVERY 6 HOURS AS NEEDED
     Route: 048
  18. ROBITUSSIN AC [Concomitant]
     Indication: COUGH
     Dosage: 10-100 MG/5 ML, TAKE 10-15 ML EVERY 4 HOURS IF NEEDED. MAX DOSE 60 ML PER 24 HOURS.
     Route: 048
  19. BETIMOL [Concomitant]
  20. PREVACID [Concomitant]
     Route: 048
  21. MULTIVITAMINS-CALCIUM-IRON-MINERALS [Concomitant]
     Dosage: 18-0.4 MG, 1 TABLET DAILY
     Route: 048
  22. MIRALAX [Concomitant]
     Route: 048
  23. PLAVIX [Concomitant]
     Route: 048
  24. COZAAR [Concomitant]
     Route: 048

REACTIONS (20)
  - ANXIETY [None]
  - CORONARY ARTERY DISEASE [None]
  - BURSITIS [None]
  - PLANTAR FASCIITIS [None]
  - HYPERTENSION [None]
  - RHEUMATOID ARTHRITIS [None]
  - POST-TRAUMATIC STRESS DISORDER [None]
  - BACK PAIN [None]
  - MAJOR DEPRESSION [None]
  - CARPAL TUNNEL SYNDROME [None]
  - LUNG NEOPLASM [None]
  - INTERVERTEBRAL DISC PROTRUSION [None]
  - GASTROOESOPHAGEAL REFLUX DISEASE [None]
  - SLEEP DISORDER [None]
  - DEPRESSION [None]
  - ANGLE CLOSURE GLAUCOMA [None]
  - ACUTE CORONARY SYNDROME [None]
  - BLOOD GLUCOSE INCREASED [None]
  - RENAL FAILURE [None]
  - HYPERLIPIDAEMIA [None]
